FAERS Safety Report 6567460-1 (Version None)
Quarter: 2010Q1

REPORT INFORMATION
  Report Type: 
  Country: None (occurrence: None)
  Receive Date: 20100127
  Receipt Date: 20100113
  Transmission Date: 20100710
  Serious: Yes (Hospitalization)
  Sender: FDA-Public Use
  Company Number: SPV1-2010-00044

PATIENT
  Age: 7 Year
  Sex: Male
  Weight: 24.3 kg

DRUGS (1)
  1. DAYTRANA [Suspect]
     Indication: DRUG USE FOR UNKNOWN INDICATION
     Dosage: 20 MG, 1X/DAY:QD, TRANSDERMAL
     Route: 062
     Dates: end: 20100105

REACTIONS (6)
  - CEREBROVASCULAR ACCIDENT [None]
  - EPILEPSY [None]
  - FIBROMUSCULAR DYSPLASIA [None]
  - SINUSITIS [None]
  - SOMNOLENCE [None]
  - STARING [None]
